FAERS Safety Report 7687965-X (Version None)
Quarter: 2011Q3

REPORT INFORMATION
  Report Type: 
  Country: None (occurrence: None)
  Receive Date: 20110817
  Receipt Date: 20110805
  Transmission Date: 20111222
  Serious: Yes (Other)
  Sender: FDA-Public Use
  Company Number: FR-ELI_LILLY_AND_COMPANY-FR201108002296

PATIENT
  Age: 74 Year
  Sex: Male

DRUGS (3)
  1. VALSARTAN [Concomitant]
     Indication: CARDIAC DISORDER
  2. FORTEO [Suspect]
     Indication: OSTEOPOROSIS
     Dosage: 20 UG, QD
     Route: 058
     Dates: start: 20110611, end: 20110729
  3. FLECAINIDE ACETATE [Concomitant]
     Indication: CARDIAC DISORDER

REACTIONS (4)
  - BLOOD PRESSURE INCREASED [None]
  - ABDOMINAL DISTENSION [None]
  - CONSTIPATION [None]
  - EXTRASYSTOLES [None]
